FAERS Safety Report 6565548-2 (Version None)
Quarter: 2010Q1

REPORT INFORMATION
  Report Type: 
  Country: None (occurrence: None)
  Receive Date: 20100201
  Receipt Date: 20100129
  Transmission Date: 20100710
  Serious: Yes (Hospitalization)
  Sender: FDA-Public Use
  Company Number: US-ABBOTT-10P-163-0621606-00

PATIENT
  Sex: Female
  Weight: 52.21 kg

DRUGS (5)
  1. DEPAKOTE ER [Suspect]
     Indication: BIPOLAR DISORDER
     Dates: start: 19960101
  2. VICODIN [Concomitant]
     Indication: SCIATICA
  3. SOMA [Concomitant]
     Indication: MUSCLE RELAXANT THERAPY
  4. KLONOPIN [Concomitant]
     Indication: ANXIETY
  5. PAXIL [Concomitant]
     Indication: DEPRESSION

REACTIONS (15)
  - ABDOMINAL DISCOMFORT [None]
  - BONE DISORDER [None]
  - DENTAL CARIES [None]
  - DIARRHOEA [None]
  - FALL [None]
  - FOOT FRACTURE [None]
  - KIDNEY INFECTION [None]
  - LIMB INJURY [None]
  - NAUSEA [None]
  - PAIN [None]
  - POSTPARTUM DEPRESSION [None]
  - SMEAR CERVIX ABNORMAL [None]
  - TOOTH ABSCESS [None]
  - TOOTH DISORDER [None]
  - TOOTH LOSS [None]
